FAERS Safety Report 15803202 (Version 1)
Quarter: 2019Q1

REPORT INFORMATION
  Report Type: Spontaneous
  Country: CZ (occurrence: CZ)
  Receive Date: 20190109
  Receipt Date: 20190109
  Transmission Date: 20190417
  Serious: Yes (Life-Threatening, Hospitalization, Disabling, Other)
  Sender: FDA-Public Use
  Company Number: CZ-PFIZER INC-2019009473

PATIENT
  Age: 78 Year
  Sex: Female
  Weight: 62 kg

DRUGS (7)
  1. AMICLOTON [Concomitant]
     Indication: HYPERTENSION
     Dosage: STRENGTH 2,5MG/25MG, ONE TABLET IN THE MORNING
     Route: 048
  2. XARELTO [Concomitant]
     Active Substance: RIVAROXABAN
     Indication: THROMBOSIS
     Dosage: 20 MG, 1X/DAY, 1 TABLET IN THE MORNING
     Route: 048
     Dates: start: 201801
  3. LOZAP [LOSARTAN POTASSIUM] [Concomitant]
     Indication: HYPERTENSION
     Dosage: 50 MG, 1X/DAY, ONE TABLET IN THE MORNING
     Route: 048
  4. TAFINLAR [Concomitant]
     Active Substance: DABRAFENIB MESYLATE
     Indication: METASTATIC MALIGNANT MELANOMA
     Dosage: 2 TABLETS (EACH PER 75 MG), IN THE MORNING, 2 TABLETS IN THE EVENING
     Route: 048
  5. MEDROL [Concomitant]
     Active Substance: METHYLPREDNISOLONE
     Indication: RHEUMATOID ARTHRITIS
     Dosage: 4 MG, 1 TABLET IN THE MORNING
     Route: 048
  6. MEKINIST [Concomitant]
     Active Substance: TRAMETINIB DIMETHYL SULFOXIDE
     Indication: METASTATIC MALIGNANT MELANOMA
     Dosage: 2 MG, 1X/DAY, ONE TABLET IN THE EVENING
     Route: 048
  7. TYGACIL [Suspect]
     Active Substance: TIGECYCLINE
     Indication: ERYSIPELAS
     Dosage: 50 MG, 2X/DAY
     Route: 042
     Dates: start: 20181118, end: 20181201

REACTIONS (7)
  - Disseminated intravascular coagulation [Unknown]
  - Thrombocytopenia [Unknown]
  - Haematochezia [Unknown]
  - Fall [Unknown]
  - Hypotension [Unknown]
  - Haematemesis [Unknown]
  - Anuria [Unknown]

NARRATIVE: CASE EVENT DATE: 20181130
